FAERS Safety Report 9241183 (Version 1)
Quarter: 2013Q1

REPORT INFORMATION
  Report Type: Spontaneous
  Country: US (occurrence: None)
  Receive Date: 20121120
  Receipt Date: 20121120
  Transmission Date: 20140127
  Serious: No
  Sender: FDA-Public Use
  Company Number: 1000039098

PATIENT
  Sex: Female

DRUGS (1)
  1. VIIBRYD (VILAZODONE HYDROCHLORIDE) [Suspect]
     Dates: start: 2012, end: 2012

REACTIONS (4)
  - Lip swelling [None]
  - Hypoaesthesia oral [None]
  - Tooth discolouration [None]
  - Overdose [None]
